FAERS Safety Report 12835030 (Version 4)
Quarter: 2019Q3

REPORT INFORMATION
  Report Type: Spontaneous
  Country: US (occurrence: US)
  Receive Date: 20161010
  Receipt Date: 20190730
  Transmission Date: 20191004
  Serious: Yes (Hospitalization, Other)
  Sender: FDA-Public Use
  Company Number: US-ASTRAZENECA-2016SF05372

PATIENT
  Age: 21790 Day
  Sex: Female

DRUGS (22)
  1. ONGLYZA [Suspect]
     Active Substance: SAXAGLIPTIN HYDROCHLORIDE
     Indication: TYPE 2 DIABETES MELLITUS
     Route: 048
     Dates: start: 20120117, end: 20140326
  2. ATENOLOL. [Concomitant]
     Active Substance: ATENOLOL
  3. LIPITOR [Concomitant]
     Active Substance: ATORVASTATIN CALCIUM
  4. GABAPENTIN. [Concomitant]
     Active Substance: GABAPENTIN
  5. CLOPIDOGREL [Concomitant]
     Active Substance: CLOPIDOGREL BISULFATE
  6. IBUPROFEN. [Concomitant]
     Active Substance: IBUPROFEN
  7. AMLODIPINE [Concomitant]
     Active Substance: AMLODIPINE BESYLATE
  8. KOMBIGLYZE XR [Suspect]
     Active Substance: METFORMIN HYDROCHLORIDE\SAXAGLIPTIN HYDROCHLORIDE
     Indication: TYPE 2 DIABETES MELLITUS
     Route: 048
     Dates: start: 201112, end: 201403
  9. PRAVASTATIN. [Concomitant]
     Active Substance: PRAVASTATIN
  10. ACTOPLUS MET [Concomitant]
     Active Substance: METFORMIN HYDROCHLORIDE\PIOGLITAZONE HYDROCHLORIDE
  11. LOSARTAN. [Concomitant]
     Active Substance: LOSARTAN
  12. TORSEMIDE. [Concomitant]
     Active Substance: TORSEMIDE
  13. NOVOLOG [Concomitant]
     Active Substance: INSULIN ASPART
  14. ASPIRIN. [Concomitant]
     Active Substance: ASPIRIN
  15. ONGLYZA [Suspect]
     Active Substance: SAXAGLIPTIN HYDROCHLORIDE
     Indication: TYPE 2 DIABETES MELLITUS
     Route: 048
     Dates: start: 201112, end: 201403
  16. LABETALOL [Concomitant]
     Active Substance: LABETALOL\LABETALOL HYDROCHLORIDE
  17. BENICAR [Concomitant]
     Active Substance: OLMESARTAN MEDOXOMIL
  18. METFORMIN [Concomitant]
     Active Substance: METFORMIN HYDROCHLORIDE
  19. SIMVASTATIN. [Concomitant]
     Active Substance: SIMVASTATIN
  20. VICTOZA [Concomitant]
     Active Substance: LIRAGLUTIDE
  21. ATORVASTATIN [Concomitant]
     Active Substance: ATORVASTATIN
  22. TRAMADOL. [Concomitant]
     Active Substance: TRAMADOL

REACTIONS (4)
  - Cardiac failure [Unknown]
  - Coronary artery disease [Unknown]
  - Acute left ventricular failure [Unknown]
  - Cardiac failure congestive [Unknown]

NARRATIVE: CASE EVENT DATE: 20131209
